FAERS Safety Report 12783195 (Version 1)
Quarter: 2016Q3

REPORT INFORMATION
  Report Type: Spontaneous
  Country: US (occurrence: US)
  Receive Date: 20160927
  Receipt Date: 20160927
  Transmission Date: 20161109
  Serious: Yes (Other)
  Sender: FDA-Public Use
  Company Number: US-BEH-2010027246

PATIENT
  Age: 604 Month
  Sex: Female
  Weight: 85.28 kg

DRUGS (37)
  1. RANITIDINE. [Concomitant]
     Active Substance: RANITIDINE
     Dosage: AT BEDTIME
  2. OMEPRAZOLE. [Concomitant]
     Active Substance: OMEPRAZOLE
     Route: 048
  3. BACTRIM [Concomitant]
     Active Substance: SULFAMETHOXAZOLE\TRIMETHOPRIM
     Dosage: BID X 10 DAYS
  4. HIZENTRA [Suspect]
     Active Substance: HUMAN IMMUNOGLOBULIN G
     Dosage: 20 ML
  5. THEO [Concomitant]
     Active Substance: THEOPHYLLINE ANHYDROUS
     Dosage: 24
  6. CLONAZEPAM. [Concomitant]
     Active Substance: CLONAZEPAM
  7. SYMBICORT [Concomitant]
     Active Substance: BUDESONIDE\FORMOTEROL FUMARATE DIHYDRATE
     Dosage: 160 - 2 PUFFS
     Route: 055
  8. SINGULAIR [Concomitant]
     Active Substance: MONTELUKAST SODIUM
  9. PROAIR HFA [Concomitant]
     Active Substance: ALBUTEROL SULFATE
     Dosage: 2 PUFFS EVERY 4 HOURS AS NEEDED
     Route: 055
  10. XYZAL [Concomitant]
     Active Substance: LEVOCETIRIZINE DIHYDROCHLORIDE
  11. CELEXA [Concomitant]
     Active Substance: CITALOPRAM HYDROBROMIDE
  12. FOSAMAX [Concomitant]
     Active Substance: ALENDRONATE SODIUM
  13. PREMPRO [Concomitant]
     Active Substance: ESTROGENS, CONJUGATED\MEDROXYPROGESTERONE ACETATE
     Dosage: QD
  14. CHLORZOXAZONE. [Concomitant]
     Active Substance: CHLORZOXAZONE
  15. BENZOTATE [Concomitant]
     Dosage: 100 MG HS PRN
  16. PRENATAL VITAMIN [Concomitant]
     Active Substance: VITAMINS
  17. GABAPENTIN. [Concomitant]
     Active Substance: GABAPENTIN
  18. SEROQUEL [Concomitant]
     Active Substance: QUETIAPINE FUMARATE
  19. ATARAX [Concomitant]
     Active Substance: HYDROXYZINE\HYDROXYZINE HYDROCHLORIDE
  20. PROMETHAZINE [Concomitant]
     Active Substance: PROMETHAZINE\PROMETHAZINE HYDROCHLORIDE
     Dosage: 50 MG PRN
  21. OXYBUTYNIN [Concomitant]
     Active Substance: OXYBUTYNIN
  22. CELEBREX [Concomitant]
     Active Substance: CELECOXIB
  23. HYDROCODONE [Concomitant]
     Active Substance: HYDROCODONE
  24. VITAMIN C [Concomitant]
     Active Substance: ASCORBIC ACID
     Dosage: QD
  25. MULTIVITAMIN [Concomitant]
     Active Substance: VITAMINS
     Dosage: QD
  26. HIZENTRA [Suspect]
     Active Substance: HUMAN IMMUNOGLOBULIN G
     Indication: IMMUNODEFICIENCY COMMON VARIABLE
     Dosage: 10 G WEEKLY VIA 4 SITES OVER 1 HR. 17 MIN.
     Route: 058
     Dates: start: 20101103
  27. DIOVAN [Concomitant]
     Active Substance: VALSARTAN
     Dosage: QD
  28. ALBUTEROL. [Concomitant]
     Active Substance: ALBUTEROL
  29. PRAVASTATIN. [Concomitant]
     Active Substance: PRAVASTATIN
     Dosage: QD
  30. CALCIUM W/D [Concomitant]
  31. KLONOPIN [Concomitant]
     Active Substance: CLONAZEPAM
     Dosage: 10 MG QHS (CAN TAKE TID PRN)
  32. FISH OIL [Concomitant]
     Active Substance: FISH OIL
     Dosage: 3 CAPS EVERY DAY
  33. VITAMIN D [Concomitant]
     Active Substance: CHOLECALCIFEROL
     Dosage: QD
  34. HIZENTRA [Suspect]
     Active Substance: HUMAN IMMUNOGLOBULIN G
     Dosage: 10 ML
  35. FLONASE [Concomitant]
     Active Substance: FLUTICASONE PROPIONATE
     Dosage: 2 PUFFS
  36. CITALOPRAM [Concomitant]
     Active Substance: CITALOPRAM HYDROBROMIDE
     Dosage: 1 MG BID PRN
  37. VITAMIN B12 [Concomitant]
     Active Substance: CYANOCOBALAMIN

REACTIONS (12)
  - Infusion site infection [Unknown]
  - Respiratory tract infection [Unknown]
  - Pyrexia [Unknown]
  - Infusion site discolouration [Unknown]
  - Infusion site erythema [Unknown]
  - Infusion site extravasation [Unknown]
  - Infusion site discomfort [Unknown]
  - Headache [Unknown]
  - Infusion site warmth [Unknown]
  - Infusion site swelling [Unknown]
  - Cough [Unknown]
  - Infusion site rash [Unknown]

NARRATIVE: CASE EVENT DATE: 20101213
